FAERS Safety Report 9983864 (Version 2)
Quarter: 2014Q1

REPORT INFORMATION
  Report Type: Spontaneous
  Country: SE (occurrence: SE)
  Receive Date: 20140307
  Receipt Date: 20140307
  Transmission Date: 20141002
  Serious: Yes (Other)
  Sender: FDA-Public Use
  Company Number: PHHY2014SE020320

PATIENT
  Age: 74 Year
  Sex: Male

DRUGS (3)
  1. LEUPRORELIN SANDOZ [Suspect]
     Indication: PROSTATE CANCER
     Dosage: 5 MG, Q3MO
     Route: 065
     Dates: start: 201306
  2. MULTAQ [Concomitant]
  3. VOLTAREN [Concomitant]

REACTIONS (3)
  - Urinary retention [Unknown]
  - Haematuria [Unknown]
  - Drug ineffective [Unknown]
